FAERS Safety Report 7708357-0 (Version None)
Quarter: 2011Q3

REPORT INFORMATION
  Report Type: 
  Country: None (occurrence: None)
  Receive Date: 20110819
  Receipt Date: 20110408
  Transmission Date: 20111222
  Serious: Yes (Death, Hospitalization)
  Sender: FDA-Public Use
  Company Number: HA11-074-AE

PATIENT
  Age: 81 Year
  Sex: Female
  Weight: 51.2565 kg

DRUGS (5)
  1. GABAPENTIN [Suspect]
     Indication: PAIN IN EXTREMITY
     Dosage: ORAL, 300MG AT BED TIME
     Route: 048
     Dates: start: 20101227, end: 20101228
  2. GABAPENTIN [Suspect]
     Indication: NERVE COMPRESSION
     Dosage: ORAL, 300MG AT BED TIME
     Route: 048
     Dates: start: 20101227, end: 20101228
  3. LASIX [Concomitant]
  4. ASPIRIN [Concomitant]
  5. COREG [Concomitant]

REACTIONS (8)
  - DYSKINESIA [None]
  - LETHARGY [None]
  - IMMOBILE [None]
  - DIARRHOEA [None]
  - CARDIAC FAILURE CONGESTIVE [None]
  - LOWER LIMB FRACTURE [None]
  - TREMOR [None]
  - VOMITING [None]
